FAERS Safety Report 7893236-9 (Version None)
Quarter: 2011Q4

REPORT INFORMATION
  Report Type: 
  Country: None (occurrence: None)
  Receive Date: 20111104
  Receipt Date: 20111031
  Transmission Date: 20120403
  Serious: Yes (Death, Hospitalization, Disabling, Other)
  Sender: FDA-Public Use
  Company Number: PHHY2011BR96408

PATIENT
  Sex: Male

DRUGS (3)
  1. EXELON [Suspect]
     Indication: SENILE DEMENTIA
     Dosage: 9MG/5CM2
     Route: 062
  2. LITHIUM CITRATE [Concomitant]
     Indication: BIPOLAR DISORDER
  3. REMERON [Concomitant]
     Dosage: 45 MG, UNK
     Route: 048

REACTIONS (7)
  - SPEECH DISORDER [None]
  - DIET REFUSAL [None]
  - URINARY TRACT INFECTION [None]
  - DEMENTIA [None]
  - DEATH [None]
  - GAIT DISTURBANCE [None]
  - KIDNEY INFECTION [None]
